FAERS Safety Report 6575221-2 (Version None)
Quarter: 2010Q1

REPORT INFORMATION
  Report Type: 
  Country: None (occurrence: None)
  Receive Date: 20100209
  Receipt Date: 20100126
  Transmission Date: 20100710
  Serious: Yes (Other)
  Sender: FDA-Public Use
  Company Number: JP-NAPPMUNDI-GBR-2010-0006038

PATIENT
  Age: 75 Year
  Sex: Female

DRUGS (3)
  1. UNIPHYLLIN CONTINUS TABLETS [Suspect]
     Indication: DRUG USE FOR UNKNOWN INDICATION
  2. OTOZENIN [Concomitant]
     Indication: DRUG USE FOR UNKNOWN INDICATION
  3. NORVASC [Concomitant]

REACTIONS (1)
  - DRUG ERUPTION [None]
